FAERS Safety Report 25583636 (Version 1)
Quarter: 2025Q3

REPORT INFORMATION
  Report Type: Spontaneous
  Country: EU (occurrence: EU)
  Receive Date: 20250721
  Receipt Date: 20250721
  Transmission Date: 20251021
  Serious: Yes (Other)
  Sender: ABBVIE
  Company Number: EU-ABBVIE-6377279

PATIENT
  Age: 29 Year
  Sex: Male
  Weight: 75 kg

DRUGS (3)
  1. RINVOQ [Suspect]
     Active Substance: UPADACITINIB
     Indication: Axial spondyloarthritis
     Dosage: FORM STRENGTH 15 MILLIGRAM
     Route: 048
     Dates: start: 20250212, end: 20250512
  2. Levil [Concomitant]
     Indication: Epilepsy
     Dosage: 2000 MILLIGRAM ?FORM STRENGTH: 1000 MG
     Route: 048
     Dates: start: 2021
  3. ETORICOXIB [Concomitant]
     Active Substance: ETORICOXIB
     Indication: Spondylitis
     Dosage: FORM STRENGTH 60 MILLIGRAM
     Route: 048
     Dates: start: 2025

REACTIONS (3)
  - Respiratory tract infection [Unknown]
  - Tuberculosis [Recovering/Resolving]
  - Pneumonia [Unknown]

NARRATIVE: CASE EVENT DATE: 20250101
